FAERS Safety Report 5156615-9 (Version None)
Quarter: 2006Q4

REPORT INFORMATION
  Report Type: 
  Country: None (occurrence: None)
  Receive Date: 20061122
  Receipt Date: 20061110
  Transmission Date: 20070319
  Serious: Yes (Hospitalization)
  Sender: FDA-Public Use
  Company Number: FR-GILEAD-2006-0010655

PATIENT
  Age: 45 Year
  Sex: Male
  Weight: 67 kg

DRUGS (8)
  1. VIREAD [Suspect]
     Route: 048
     Dates: start: 20040615, end: 20060627
  2. VISTIDE [Suspect]
     Indication: CYTOMEGALOVIRUS INFECTION
     Route: 042
     Dates: start: 20040815, end: 20060606
  3. EPIVIR [Concomitant]
  4. KALETRA [Concomitant]
  5. BACTRIM [Concomitant]
  6. SYMBICORT [Concomitant]
  7. ACETAMINOPHEN W/ PROPOXYPHENE HCL [Concomitant]
  8. DIFFU K [Concomitant]

REACTIONS (21)
  - ABSCESS NECK [None]
  - AMINOACIDURIA [None]
  - BURNING SENSATION [None]
  - CYTOMEGALOVIRUS INFECTION [None]
  - DRUG INTERACTION [None]
  - ESCHERICHIA INFECTION [None]
  - FANCONI SYNDROME ACQUIRED [None]
  - FISTULA [None]
  - GENERAL PHYSICAL HEALTH DETERIORATION [None]
  - GLYCOSURIA [None]
  - HYPOKALAEMIA [None]
  - MUSCULAR WEAKNESS [None]
  - NECROSIS [None]
  - OESOPHAGEAL FISTULA [None]
  - PAIN IN EXTREMITY [None]
  - POLYDIPSIA [None]
  - POLYURIA [None]
  - TRACHEAL DISORDER [None]
  - TRACHEAL STENOSIS [None]
  - TRACHEO-OESOPHAGEAL FISTULA [None]
  - VOMITING [None]
